FAERS Safety Report 13632636 (Version 13)
Quarter: 2017Q3

REPORT INFORMATION
  Report Type: Report from Study
  Country: None (occurrence: BE)
  Receive Date: 20170608
  Receipt Date: 20170829
  Transmission Date: 20171127
  Serious: Yes (Hospitalization, Other)
  Sender: FDA-Public Use
  Company Number: BE-ABBVIE-17K-013-1970308-00

PATIENT
  Age: 83 Year
  Sex: Female
  Weight: 44 kg

DRUGS (10)
  1. DUODOPA [Suspect]
     Active Substance: CARBIDOPA\LEVODOPA
     Dosage: MD= 2.9 ML; CD= 1.7 ML/H DURING 16 HRS; EDA= 1 ML
     Route: 050
     Dates: start: 20170619, end: 20170627
  2. DUODOPA [Suspect]
     Active Substance: CARBIDOPA\LEVODOPA
     Dosage: MD=2.9ML?CD=1.5ML/HR DURING 16HRS?EDA=1.5ML
     Route: 050
     Dates: start: 20170627, end: 20170703
  3. DUODOPA [Suspect]
     Active Substance: CARBIDOPA\LEVODOPA
     Dosage: AM= 2.9 ML; CD= 1.7 ML/H DURING 16 HRS; ED= 1 ML
     Route: 050
     Dates: start: 20170315, end: 20170608
  4. DUODOPA [Suspect]
     Active Substance: CARBIDOPA\LEVODOPA
     Dosage: MD= 2.9 ML; CD= 1.3 ML/H DURING 16 HRS; EDA= 1 ML
     Route: 050
     Dates: start: 20170822
  5. DUODOPA [Suspect]
     Active Substance: CARBIDOPA\LEVODOPA
     Dosage: MD: 2.9 ML, CD: 0.5 ML/HR DURING 16 HRS?EDA: 1 ML
     Route: 050
     Dates: start: 20170608, end: 20170619
  6. DUODOPA [Suspect]
     Active Substance: CARBIDOPA\LEVODOPA
     Dosage: CD: 1.7 ML/HR DURING 16 HRS
     Route: 050
     Dates: start: 2017, end: 201708
  7. DUODOPA [Suspect]
     Active Substance: CARBIDOPA\LEVODOPA
     Indication: PARKINSON^S DISEASE
     Dosage: AM= 6 ML; CD= 2.2 ML/H DURING 16 HRS; ED= 1 ML
     Route: 050
     Dates: start: 20170213, end: 20170217
  8. DUODOPA [Suspect]
     Active Substance: CARBIDOPA\LEVODOPA
     Dosage: MD= 2.9 ML; CD= 1.5 ML/H DURING 16 HRS; EDA= 1 ML
     Route: 050
     Dates: start: 201708, end: 20170822
  9. DUODOPA [Suspect]
     Active Substance: CARBIDOPA\LEVODOPA
     Dosage: DOSE CONTINUOUSLY MONITORED AND ADAPTED
     Route: 050
     Dates: start: 20170217, end: 20170315
  10. DUODOPA [Suspect]
     Active Substance: CARBIDOPA\LEVODOPA
     Dosage: MD: 2.9 ML?CD: 1.4 ML/HR DURING 16 HRS?EDA: 1 ML
     Route: 050
     Dates: start: 20170703, end: 2017

REACTIONS (20)
  - Medical device site infection [Unknown]
  - Weight decreased [Unknown]
  - Movement disorder [Unknown]
  - Asthenia [Unknown]
  - Dehydration [Unknown]
  - Reduced facial expression [Unknown]
  - Tremor [Unknown]
  - Weight decreased [Unknown]
  - Confusional state [Unknown]
  - General physical health deterioration [Recovered/Resolved]
  - General physical health deterioration [Not Recovered/Not Resolved]
  - Hepatic failure [Unknown]
  - Renal failure [Unknown]
  - Underdose [Unknown]
  - Hypophagia [Unknown]
  - Oedema [Unknown]
  - Fungal oesophagitis [Unknown]
  - Decreased appetite [Unknown]
  - Dyskinesia [Not Recovered/Not Resolved]
  - Malaise [Unknown]

NARRATIVE: CASE EVENT DATE: 2017
